FAERS Safety Report 21448184 (Version 1)
Quarter: 2022Q4

REPORT INFORMATION
  Report Type: Spontaneous
  Country: IT (occurrence: IT)
  Receive Date: 20221012
  Receipt Date: 20221012
  Transmission Date: 20230113
  Serious: Yes (Hospitalization)
  Sender: FDA-Public Use
  Company Number: None

PATIENT
  Age: 77 Year
  Sex: Female
  Weight: 54 kg

DRUGS (8)
  1. MVASI [Suspect]
     Active Substance: BEVACIZUMAB-AWWB
     Indication: Neoplasm malignant
     Dosage: MVASI IV 100MG 4ML 25 MG / ML, CONCENTRATE FOR SOLUTION FOR INFUSION (4 ML) - BEVACIZUMAB (PA); EACH
     Route: 040
     Dates: start: 20220712, end: 20220914
  2. OXALIPLATIN [Concomitant]
     Active Substance: OXALIPLATIN
     Indication: Neoplasm malignant
     Dosage: UNK
     Route: 040
     Dates: start: 2022
  3. IRBESARTAN [Concomitant]
     Active Substance: IRBESARTAN
     Indication: Hypertensive heart disease
     Dosage: UNK
     Route: 048
     Dates: start: 2022
  4. FLUOROURACIL [Concomitant]
     Active Substance: FLUOROURACIL
     Indication: Neoplasm malignant
     Dosage: UNK
     Route: 048
     Dates: start: 2022
  5. ASPIRIN [Concomitant]
     Active Substance: ASPIRIN
     Indication: Hypertension
     Dosage: UNK
     Route: 048
     Dates: start: 2022
  6. OMEPRAZOLE [Concomitant]
     Active Substance: OMEPRAZOLE
     Indication: Gastrooesophageal reflux disease
     Dosage: UNK
     Route: 048
     Dates: start: 2022
  7. LEUCOVORIN CALCIUM [Concomitant]
     Active Substance: LEUCOVORIN CALCIUM
     Indication: Neoplasm malignant
     Dosage: UNK
     Route: 040
     Dates: start: 2022
  8. NEBIVOLOL HYDROCHLORIDE [Concomitant]
     Active Substance: NEBIVOLOL HYDROCHLORIDE
     Indication: Hypertensive heart disease
     Dosage: UNK

REACTIONS (6)
  - Pyrexia [Recovered/Resolved]
  - Breath sounds abnormal [Recovered/Resolved]
  - Chills [Recovered/Resolved]
  - Tachycardia [Recovered/Resolved]
  - Chest discomfort [Recovered/Resolved]
  - Hypertension [Recovered/Resolved]

NARRATIVE: CASE EVENT DATE: 20220914
